FAERS Safety Report 6380754-8 (Version None)
Quarter: 2009Q3

REPORT INFORMATION
  Report Type: 
  Country: None (occurrence: None)
  Receive Date: 20090924
  Receipt Date: 20090914
  Transmission Date: 20100115
  Serious: Yes (Other)
  Sender: FDA-Public Use
  Company Number: GXKR2009IN10235

PATIENT
  Age: 12 Year
  Sex: Male

DRUGS (4)
  1. ALPRAZOLAM [Suspect]
     Indication: ANXIETY
     Dosage: 0.25 MG, ONCE/SINGLE,
  2. ALPRAZOLAM [Suspect]
     Indication: CHEST PAIN
     Dosage: 0.25 MG, ONCE/SINGLE,
  3. ESCITALOPRAM         (ESCITALOPRAM) UNKNOWN [Suspect]
     Indication: ANXIETY
     Dosage: 10 MG, ONCE/SINGLE,
  4. ESCITALOPRAM         (ESCITALOPRAM) UNKNOWN [Suspect]
     Indication: CHEST PAIN
     Dosage: 10 MG, ONCE/SINGLE,

REACTIONS (13)
  - BLOOD PRESSURE DECREASED [None]
  - CLONUS [None]
  - DYSARTHRIA [None]
  - DYSKINESIA [None]
  - DYSPHEMIA [None]
  - DYSTONIA [None]
  - EXTENSOR PLANTAR RESPONSE [None]
  - EXTRAPYRAMIDAL DISORDER [None]
  - HYPERTONIA [None]
  - MOVEMENT DISORDER [None]
  - MUSCLE RIGIDITY [None]
  - POSTURE ABNORMAL [None]
  - TREMOR [None]
